FAERS Safety Report 16479086 (Version 1)
Quarter: 2019Q2

REPORT INFORMATION
  Report Type: Spontaneous
  Country: US (occurrence: US)
  Receive Date: 20190626
  Receipt Date: 20190626
  Transmission Date: 20190711
  Serious: Yes (Other)
  Sender: FDA-Public Use
  Company Number: US-SAOL THERAPEUTICS-2018SAO00954

PATIENT
  Age: 42 Year
  Sex: Male
  Weight: 70.3 kg

DRUGS (23)
  1. BACLOFEN. [Concomitant]
     Active Substance: BACLOFEN
     Indication: CEREBROVASCULAR ACCIDENT
  2. LEVOFLOXACIN. [Concomitant]
     Active Substance: LEVOFLOXACIN
     Dosage: 500 MG, 1X/DAY
     Route: 048
  3. NYSTATIN. [Concomitant]
     Active Substance: NYSTATIN
     Dosage: UNK, 3X/DAY
  4. SENNOSIDES. [Concomitant]
     Active Substance: SENNOSIDES
     Dosage: UNK, AS DIRECTED
  5. LIORESAL [Suspect]
     Active Substance: BACLOFEN
     Indication: CEREBROVASCULAR ACCIDENT
  6. AMITRIPTYLINE HYDROCHLORIDE. [Concomitant]
     Active Substance: AMITRIPTYLINE HYDROCHLORIDE
     Dosage: 25 MG, 1X/DAY
     Route: 048
  7. CARVEDILOL. [Concomitant]
     Active Substance: CARVEDILOL
     Dosage: 3.125 MG, 2X/DAY
     Route: 048
  8. CLONAZEPAM. [Concomitant]
     Active Substance: CLONAZEPAM
     Dosage: 0.5 MG, 1X/DAY
  9. LISINOPRIL. [Concomitant]
     Active Substance: LISINOPRIL
     Dosage: 5 MG, 1X/DAY
     Route: 048
  10. MONETELUKAST SODIUM [Concomitant]
     Dosage: 10 MG, AS DIRECTED
     Route: 048
  11. LIORESAL [Suspect]
     Active Substance: BACLOFEN
     Indication: MUSCLE SPASTICITY
     Dosage: 1412.4 ?G, \DAY
     Route: 037
  12. COMPOUNDED BACLOFEN [Suspect]
     Active Substance: BACLOFEN
     Indication: MUSCLE SPASTICITY
     Dosage: 1412.4 ?G, \DAY
     Route: 037
  13. MUPIROCIN. [Concomitant]
     Active Substance: MUPIROCIN
     Dosage: 1 DOSAGE UNITS, 3X/DAY
     Route: 061
  14. COMPOUNDED BACLOFEN [Suspect]
     Active Substance: BACLOFEN
     Indication: CEREBROVASCULAR ACCIDENT
  15. BUDESONIDE. [Concomitant]
     Active Substance: BUDESONIDE
     Dosage: 0.5 MG, 2X/DAY
  16. POLYETHYLENE GLYCOL 3350. [Concomitant]
     Active Substance: POLYETHYLENE GLYCOL 3350
  17. BACLOFEN. [Concomitant]
     Active Substance: BACLOFEN
     Indication: MUSCLE SPASTICITY
     Dosage: 15 MG, 3X/DAY
     Route: 048
  18. LORATADINE. [Concomitant]
     Active Substance: LORATADINE
     Dosage: 10 MG, AS NEEDED
     Route: 048
  19. IPRATROPIUM/ALBUTEROL SULFATE [Concomitant]
     Dosage: 1 DOSAGE UNITS, 4X/DAY
  20. CLONAZEPAM. [Concomitant]
     Active Substance: CLONAZEPAM
     Dosage: 1 MG, 1X/DAY
  21. LEVETIRACETAM. [Concomitant]
     Active Substance: LEVETIRACETAM
     Dosage: 15 ML, 2X/DAY
  22. ZANTAC [Concomitant]
     Active Substance: RANITIDINE HYDROCHLORIDE
     Dosage: 10 ML 150 MG TOTAL , 2X/DAY
     Route: 048
  23. TAVOPROST [Concomitant]
     Dosage: 1 GTT, 1X/DAY NIGHTLY
     Route: 047

REACTIONS (2)
  - Pneumonia [Unknown]
  - Device failure [Recovered/Resolved]

NARRATIVE: CASE EVENT DATE: 20180815
